FAERS Safety Report 9498603 (Version 5)
Quarter: 2014Q1

REPORT INFORMATION
  Report Type: Spontaneous
  Country: US (occurrence: US)
  Receive Date: 20130904
  Receipt Date: 20140107
  Transmission Date: 20141002
  Serious: Yes (Other)
  Sender: FDA-Public Use
  Company Number: US-PFIZER INC-2013254605

PATIENT
  Age: 62 Year
  Sex: Male
  Weight: 83.9 kg

DRUGS (10)
  1. LYRICA [Suspect]
     Indication: DIABETIC NEUROPATHY
     Dosage: 150 MG, 3X/DAY
     Dates: start: 2013, end: 2013
  2. GABAPENTIN [Suspect]
     Indication: PAIN
     Dosage: 400 MG, 3X/DAY
  3. TRAMADOL HYDROCHLORIDE [Suspect]
     Indication: PAIN
     Dosage: UNK
  4. VICODIN [Suspect]
     Indication: PAIN
     Dosage: UNK
  5. LOVASTATIN [Concomitant]
     Indication: CARDIAC DISORDER
     Dosage: 40 MG, DAILY
  6. METFORMIN [Concomitant]
     Indication: DIABETES MELLITUS
     Dosage: 1000 MG, 2X/DAY
  7. GLYBURIDE [Concomitant]
     Indication: DIABETES MELLITUS
     Dosage: 5 MG, DAILY
  8. HYDROCODONE [Concomitant]
     Dosage: UNK
  9. LISINOPRIL [Concomitant]
     Indication: CARDIAC DISORDER
     Dosage: 5 MG, DAILY
  10. PRAVASTATIN [Concomitant]
     Dosage: UNK

REACTIONS (5)
  - Expired drug administered [Unknown]
  - Weight decreased [Unknown]
  - Pain [Unknown]
  - Pain in extremity [Unknown]
  - Drug ineffective [Unknown]
